FAERS Safety Report 7518598-3 (Version None)
Quarter: 2011Q2

REPORT INFORMATION
  Report Type: 
  Country: None (occurrence: None)
  Receive Date: 20110523
  Receipt Date: 20110506
  Transmission Date: 20111010
  Serious: Yes (Life-Threatening, Hospitalization, Disabling)
  Sender: FDA-Public Use
  Company Number: AUR-APL-2011-01604

PATIENT
  Age: 87 Year
  Sex: Male

DRUGS (13)
  1. FORTISIP [Concomitant]
  2. ISONIAZOLE [Concomitant]
  3. OMEPRAZOLE [Concomitant]
  4. SENNA-MINT WAF [Concomitant]
  5. SIMVASTATIN [Suspect]
     Indication: MYOCARDIAL ISCHAEMIA
     Dosage: 40MG - DAILY - ORAL
     Route: 048
  6. SIMVASTATIN [Suspect]
     Indication: CARDIAC FAILURE
     Dosage: 40MG - DAILY - ORAL
     Route: 048
  7. BISOPROLOL FUMARATE [Concomitant]
  8. CITALOPRAM [Concomitant]
  9. HYDROXOCOBALAM [Concomitant]
  10. PYRAZINAMIDE [Concomitant]
  11. RAMIPRIL [Concomitant]
  12. RIFAMPICIN [Concomitant]
  13. FUROSEMIDE [Concomitant]

REACTIONS (5)
  - DISEASE PROGRESSION [None]
  - PULMONARY FIBROSIS [None]
  - COUGH [None]
  - WEIGHT DECREASED [None]
  - DYSPNOEA [None]
